FAERS Safety Report 25162038 (Version 3)
Quarter: 2025Q2

REPORT INFORMATION
  Report Type: Spontaneous
  Country: JP (occurrence: JP)
  Receive Date: 20250404
  Receipt Date: 20250513
  Transmission Date: 20250717
  Serious: Yes (Other)
  Sender: BRISTOL-MYERS SQUIBB COMPANY
  Company Number: JP-TAIHO-2025-003327

PATIENT
  Age: 77 Year
  Sex: Male

DRUGS (4)
  1. ABRAXANE [Suspect]
     Active Substance: PACLITAXEL
     Indication: Pancreatic carcinoma
     Dosage: 125 MG/M2/DAY, DETAILS NOT REPORTED?DAILY DOSE: 125 MILLIGRAM(S)/SQ. METER
     Route: 041
     Dates: start: 20240325, end: 20250114
  2. ABRAXANE [Suspect]
     Active Substance: PACLITAXEL
     Dosage: 125 MG/M2/DAY, DETAILS NOT REPORTED?DAILY DOSE: 125 MILLIGRAM(S)/SQ. METER
     Route: 041
     Dates: start: 20250311
  3. GEMCITABINE HYDROCHLORIDE [Suspect]
     Active Substance: GEMCITABINE HYDROCHLORIDE
     Indication: Pancreatic carcinoma
     Dosage: 1000 MG/M2/DAY, DETAILS NOT REPORTED?DAILY DOSE: 1000 MILLIGRAM(S)/SQ. METER
     Route: 041
     Dates: start: 20240325, end: 20250114
  4. GEMCITABINE HYDROCHLORIDE [Suspect]
     Active Substance: GEMCITABINE HYDROCHLORIDE
     Dosage: 1000 MG/M2/DAY, DETAILS NOT REPORTED?DAILY DOSE: 1000 MILLIGRAM(S)/SQ. METER
     Route: 041
     Dates: start: 20250311

REACTIONS (3)
  - Cardiac failure [Recovered/Resolved]
  - Atrial fibrillation [Recovered/Resolved]
  - Pleural effusion [Recovered/Resolved]

NARRATIVE: CASE EVENT DATE: 20250114
